FAERS Safety Report 15847615 (Version 2)
Quarter: 2019Q1

REPORT INFORMATION
  Report Type: Spontaneous
  Country: TZ (occurrence: TZ)
  Receive Date: 20190121
  Receipt Date: 20190203
  Transmission Date: 20190417
  Serious: Yes (Congenital Anomaly)
  Sender: FDA-Public Use
  Company Number: TZ-AUROBINDO-AUR-APL-2019-001287

PATIENT
  Sex: Male
  Weight: 2.3 kg

DRUGS (3)
  1. DESCOVY [Suspect]
     Active Substance: EMTRICITABINE\TENOFOVIR ALAFENAMIDE FUMARATE
     Indication: HIV INFECTION
     Dosage: 225 MILLIGRAM, DAILY
     Route: 064
     Dates: start: 20180517
  2. EFAVIRENZ, LAMIVUDINE AND TENOFOVIR DISOPROXIL FUMARATE [Suspect]
     Active Substance: EFAVIRENZ\LAMIVUDINE\TENOFOVIR DISOPROXIL FUMARATE
     Indication: HIV INFECTION
     Dosage: UNK
     Route: 064
     Dates: start: 20180510, end: 20180516
  3. TIVICAY [Suspect]
     Active Substance: DOLUTEGRAVIR SODIUM
     Indication: HIV INFECTION
     Dosage: 50 MILLIGRAM, DAILY
     Route: 064
     Dates: start: 20180517

REACTIONS (2)
  - Haemangioma [Unknown]
  - Foetal exposure during pregnancy [Unknown]
